FAERS Safety Report 21786685 (Version 2)
Quarter: 2023Q1

REPORT INFORMATION
  Report Type: Report from Study
  Country: BR (occurrence: BR)
  Receive Date: 20221228
  Receipt Date: 20230105
  Transmission Date: 20230418
  Serious: Yes (Other)
  Sender: FDA-Public Use
  Company Number: BR-002147023-NVSC2022BR253031

PATIENT
  Age: 57 Year
  Sex: Female

DRUGS (1)
  1. COSENTYX [Suspect]
     Active Substance: SECUKINUMAB
     Indication: Product used for unknown indication
     Dosage: UNK, QW (ATTACK DOSES)
     Route: 065

REACTIONS (7)
  - Epilepsy [Unknown]
  - Nausea [Recovering/Resolving]
  - Memory impairment [Unknown]
  - Depression [Unknown]
  - Sleep disorder [Recovering/Resolving]
  - Arthralgia [Unknown]
  - Pain [Unknown]
